FAERS Safety Report 8798961 (Version 3)
Quarter: 2012Q4

REPORT INFORMATION
  Report Type: Report from Study
  Country: JP (occurrence: JP)
  Receive Date: 20120920
  Receipt Date: 20121029
  Transmission Date: 20130627
  Serious: Yes (Hospitalization, Other)
  Sender: FDA-Public Use
  Company Number: JP-VERTEX PHARMACEUTICAL INC.-AE-2012-003529

PATIENT
  Age: 49 Year
  Sex: Female

DRUGS (22)
  1. VX-950 [Suspect]
     Indication: HEPATITIS C
     Dosage: 2250 mg, qd
     Route: 048
     Dates: start: 20120125, end: 20120301
  2. VX-950 [Suspect]
     Dosage: 1500 mg/qd
     Route: 048
     Dates: start: 20120302, end: 20120302
  3. PEGINTRON [Suspect]
     Indication: HEPATITIS C
     Dosage: 1.3 ?g/kg, UNK
     Route: 058
     Dates: start: 20120125, end: 20120229
  4. PEGINTRON [Suspect]
     Dosage: 1.5 ?g/kg, UNK
     Route: 058
     Dates: start: 20120314
  5. PEGINTRON [Suspect]
     Dosage: 1.5 ?g/kg, UNK
     Route: 058
     Dates: start: 20120425
  6. PEGINTRON [Suspect]
     Dosage: 40 ?g/kg, UNK
     Route: 058
     Dates: start: 20120502, end: 20120502
  7. PEGINTRON [Suspect]
     Dosage: 60 ?g/kg, UNK
     Route: 058
     Dates: start: 20120509, end: 20120606
  8. PEGINTRON [Suspect]
     Dosage: 80 ?g/kg, UNK
     Route: 058
     Dates: start: 20120613, end: 20120704
  9. REBETOL [Suspect]
     Indication: HEPATITIS C
     Dosage: 800 mg, qd
     Route: 048
     Dates: start: 20120125, end: 20120228
  10. REBETOL [Suspect]
     Dosage: 400 mg, qd
     Route: 048
     Dates: start: 20120229, end: 20120305
  11. REBETOL [Suspect]
     Dosage: 800 mg, qd
     Route: 048
     Dates: start: 20120314, end: 20120711
  12. DESYREL [Suspect]
     Indication: DEPRESSION
     Dosage: 50 mg, qd
     Route: 048
     Dates: end: 20120430
  13. LEXAPRO [Concomitant]
     Indication: DEPRESSION
     Dosage: 10 mg, qd
     Route: 048
     Dates: end: 20120505
  14. LOXONIN [Concomitant]
     Dosage: UNK, prn
     Route: 048
  15. MUCOSTA [Concomitant]
     Dosage: 300 mg, qd
     Route: 048
  16. APHTASOLON [Concomitant]
     Dosage: UNK, prn
     Route: 051
     Dates: start: 20120215, end: 20120222
  17. HACHIAZULE                         /00317302/ [Concomitant]
     Dosage: UNK UNK, prn
     Route: 051
     Dates: start: 20120222, end: 20120229
  18. PURSENNID /00142207/ [Concomitant]
     Dosage: UNK UNK, prn
     Route: 048
  19. NAUZELIN [Concomitant]
     Dosage: 3 DF, qd
     Route: 048
     Dates: start: 20120522, end: 20120526
  20. LAC-B [Concomitant]
     Dosage: 3 g, qd
     Route: 048
     Dates: start: 20120522, end: 20120526
  21. PRIMPERAN [Concomitant]
     Dosage: 1 amp, prn
     Route: 042
     Dates: start: 20120522, end: 20120523
  22. VITAMEDIN                          /00274301/ [Concomitant]
     Dosage: 3 DF, qd
     Route: 048
     Dates: start: 20120629, end: 20120711

REACTIONS (3)
  - Neutrophil count decreased [Recovered/Resolved]
  - Dizziness [Recovered/Resolved]
  - Asthenia [Recovered/Resolved]
